FAERS Safety Report 9978044 (Version 1)
Quarter: 2014Q1

REPORT INFORMATION
  Report Type: Report from Study
  Country: US (occurrence: US)
  Receive Date: 20140306
  Receipt Date: 20140306
  Transmission Date: 20141002
  Serious: No
  Sender: FDA-Public Use
  Company Number: US-ABBVIE-13P-163-1058354-00

PATIENT
  Age: 33 Year
  Sex: Female
  Weight: 94.89 kg

DRUGS (4)
  1. LUPRON DEPOT [Suspect]
     Indication: ENDOMETRIOSIS
     Route: 030
     Dates: start: 20130216
  2. MULTIVITAMIN [Concomitant]
     Indication: PRODUCT USED FOR UNKNOWN INDICATION
     Dosage: 1 TABLET DAILY
     Route: 048
  3. BYSTOLIC [Concomitant]
     Indication: HYPERTENSION
     Route: 048
  4. ADD-BACK THERAPY [Concomitant]
     Indication: PRODUCT USED FOR UNKNOWN INDICATION

REACTIONS (3)
  - Activities of daily living impaired [Unknown]
  - Dysmenorrhoea [Not Recovered/Not Resolved]
  - Weight increased [Not Recovered/Not Resolved]
